FAERS Safety Report 18060935 (Version 2)
Quarter: 2021Q2

REPORT INFORMATION
  Report Type: Spontaneous
  Country: US (occurrence: US)
  Receive Date: 20200723
  Receipt Date: 20210421
  Transmission Date: 20210717
  Serious: Yes (Other)
  Sender: FDA-Public Use
  Company Number: US-MYLANLABS-2020M1066543

PATIENT
  Age: 56 Year
  Sex: Male
  Weight: 90 kg

DRUGS (17)
  1. VALSARTAN AND HYDROCHLOROTHIAZIDE TABLETS, USP [Suspect]
     Active Substance: HYDROCHLOROTHIAZIDE\VALSARTAN
     Indication: HYPERTENSION
     Dosage: UNK
  2. VALSARTAN HCTZ [Suspect]
     Active Substance: HYDROCHLOROTHIAZIDE\VALSARTAN
     Indication: HYPERTENSION
     Dosage: 320?12.5MG
     Dates: start: 20170419, end: 20170718
  3. VALSARTAN. [Suspect]
     Active Substance: VALSARTAN
     Indication: HYPERTENSION
     Dosage: 320 MILLIGRAM
     Dates: start: 20160217, end: 20160510
  4. VALSARTAN AND HYDROCHLOROTHIAZIDE TABLETS, USP [Suspect]
     Active Substance: HYDROCHLOROTHIAZIDE\VALSARTAN
     Dosage: 320?12.5 MG
     Dates: start: 20140123, end: 20140320
  5. VALSARTAN HCTZ [Suspect]
     Active Substance: HYDROCHLOROTHIAZIDE\VALSARTAN
     Dosage: 320?12.5MG
     Dates: start: 20160629, end: 20161214
  6. VALSARTAN. [Suspect]
     Active Substance: VALSARTAN
     Dosage: 320 MILLIGRAM
     Dates: start: 20170518, end: 20170917
  7. VALSARTAN. [Suspect]
     Active Substance: VALSARTAN
     Dosage: 320?12.5 MG
     Dates: start: 20170712, end: 20180110
  8. VALSARTAN. [Suspect]
     Active Substance: VALSARTAN
     Indication: HYPERTENSION
     Dosage: 320 MILLIGRAM
     Dates: start: 20170228, end: 20170529
  9. VALSARTAN HCTZ [Suspect]
     Active Substance: HYDROCHLOROTHIAZIDE\VALSARTAN
     Dosage: 320?12.5MG
     Dates: start: 20150629, end: 20150729
  10. VALSARTAN. [Suspect]
     Active Substance: VALSARTAN
     Indication: HYPERTENSION
     Dosage: 160 MILLIGRAM
     Dates: start: 20150903, end: 20160114
  11. VALSARTAN. [Suspect]
     Active Substance: VALSARTAN
     Indication: HYPERTENSION
     Dosage: 320 MILLIGRAM
     Dates: start: 20151223, end: 20160218
  12. VALSARTAN AND HYDROCHLOROTHIAZIDE TABLETS, USP [Suspect]
     Active Substance: HYDROCHLOROTHIAZIDE\VALSARTAN
     Dosage: 320?12.5 MG
     Dates: start: 20150330, end: 20150527
  13. VALSARTAN. [Suspect]
     Active Substance: VALSARTAN
     Dosage: 320 MILLIGRAM
     Dates: start: 20170227, end: 20170329
  14. VALSARTAN AND HYDROCHLOROTHIAZIDE TABLETS, USP [Suspect]
     Active Substance: HYDROCHLOROTHIAZIDE\VALSARTAN
     Dosage: 320?12.5 MG
     Dates: start: 20121213, end: 20130112
  15. VALSARTAN AND HYDROCHLOROTHIAZIDE TABLETS, USP [Suspect]
     Active Substance: HYDROCHLOROTHIAZIDE\VALSARTAN
     Dosage: 320?12.5 MG
     Dates: start: 20150526, end: 20150625
  16. VALSARTAN HCTZ [Suspect]
     Active Substance: HYDROCHLOROTHIAZIDE\VALSARTAN
     Indication: HYPERTENSION
     Dosage: 320?12.5MG
     Dates: start: 20150301, end: 20150330
  17. VALSARTAN. [Suspect]
     Active Substance: VALSARTAN
     Dosage: 320 MILLIGRAM
     Dates: start: 20160509, end: 20160703

REACTIONS (1)
  - Oesophageal adenocarcinoma [Unknown]

NARRATIVE: CASE EVENT DATE: 201609
